FAERS Safety Report 17057432 (Version 1)
Quarter: 2019Q4

REPORT INFORMATION
  Report Type: Spontaneous
  Country: CN (occurrence: CN)
  Receive Date: 20191121
  Receipt Date: 20191121
  Transmission Date: 20200122
  Serious: Yes (Other)
  Sender: FDA-Public Use
  Company Number: CN-ROCHE-2469439

PATIENT
  Sex: Male
  Weight: 65 kg

DRUGS (2)
  1. XELODA [Suspect]
     Active Substance: CAPECITABINE
     Indication: NASOPHARYNGEAL CANCER RECURRENT
     Route: 048
     Dates: start: 20190124, end: 20190124
  2. XELODA [Suspect]
     Active Substance: CAPECITABINE
     Route: 048
     Dates: start: 20191017, end: 20191030

REACTIONS (8)
  - Off label use [Unknown]
  - Erythema [Recovering/Resolving]
  - Dry skin [Recovering/Resolving]
  - Swelling [Recovering/Resolving]
  - Intentional product use issue [Unknown]
  - Pigmentation disorder [Unknown]
  - Decreased appetite [Recovering/Resolving]
  - Skin exfoliation [Recovering/Resolving]
